FAERS Safety Report 19845698 (Version 1)
Quarter: 2021Q3

REPORT INFORMATION
  Report Type: Spontaneous
  Country: US (occurrence: US)
  Receive Date: 20210917
  Receipt Date: 20210917
  Transmission Date: 20211014
  Serious: Yes (Other)
  Sender: FDA-Public Use
  Company Number: None

PATIENT
  Age: 83 Year
  Sex: Male
  Weight: 85.5 kg

DRUGS (8)
  1. MECLIZINE 25 MG [Suspect]
     Active Substance: MECLIZINE HYDROCHLORIDE
     Indication: VERTIGO POSITIONAL
     Dosage: ?          OTHER STRENGTH:12.5 MG/TAB;QUANTITY:2 TABLET(S);?
     Route: 048
     Dates: start: 20210514, end: 20210614
  2. IRBESARTAN. [Concomitant]
     Active Substance: IRBESARTAN
  3. CHLORTHALIDONE. [Concomitant]
     Active Substance: CHLORTHALIDONE
  4. AREDS 2 [Concomitant]
     Active Substance: MINERALS\VITAMINS
  5. CLONIDINE. [Concomitant]
     Active Substance: CLONIDINE
  6. VITAMINS [Concomitant]
     Active Substance: VITAMINS
  7. CALCIUM [Concomitant]
     Active Substance: CALCIUM
  8. NASONEX [Concomitant]
     Active Substance: MOMETASONE FUROATE

REACTIONS (1)
  - Vertigo [None]

NARRATIVE: CASE EVENT DATE: 20210704
